FAERS Safety Report 9074008 (Version 1)
Quarter: 2013Q1

REPORT INFORMATION
  Report Type: Report from Study
  Country: US (occurrence: US)
  Receive Date: 20130129
  Receipt Date: 20130129
  Transmission Date: 20140127
  Serious: Yes (Other)
  Sender: FDA-Public Use
  Company Number: US-ABBOTT-12P-163-0910445-00

PATIENT
  Age: 65 Year
  Sex: Female

DRUGS (9)
  1. HUMIRA 40 MG/0.8 ML PEN [Suspect]
     Indication: PSORIASIS
     Dates: start: 2007
  2. PRAVASTATIN SODIUM [Concomitant]
     Indication: BLOOD CHOLESTEROL
     Dosage: 40 MG DAILY
     Dates: start: 201202
  3. ENABLEX [Concomitant]
     Indication: INCONTINENCE
     Dosage: 15 MG DAILY
  4. ATENOLOL [Concomitant]
     Indication: PRODUCT USED FOR UNKNOWN INDICATION
  5. BENICAR [Concomitant]
     Indication: PRODUCT USED FOR UNKNOWN INDICATION
     Dosage: 2 X 20 MG TABS AT BEDTIME = 40 MG DAILY
  6. LISINOPRIL AND HYDROCHLOROTHIAZIDE [Concomitant]
     Indication: PRODUCT USED FOR UNKNOWN INDICATION
     Dosage: 2 X 20/12.5 MG TABLETS DAILY
  7. CRESTOR [Concomitant]
     Indication: PRODUCT USED FOR UNKNOWN INDICATION
  8. CHOLESTEROL TREATMENT [Concomitant]
     Indication: PROPHYLAXIS
  9. CLONIDINE [Concomitant]
     Indication: BLOOD PRESSURE
     Dates: start: 201203

REACTIONS (7)
  - Mammoplasty [Not Recovered/Not Resolved]
  - Sinusitis [Recovered/Resolved]
  - Sinusitis [Recovered/Resolved]
  - Sinusitis [Recovered/Resolved]
  - Incontinence [Unknown]
  - Bronchitis [Unknown]
  - Hypersensitivity [Unknown]
